FAERS Safety Report 6794586-X (Version None)
Quarter: 2010Q2

REPORT INFORMATION
  Report Type: 
  Country: None (occurrence: None)
  Receive Date: 20100625
  Receipt Date: 20100616
  Transmission Date: 20101027
  Serious: Yes (Other)
  Sender: FDA-Public Use
  Company Number: US-JNJFOC-20100605650

PATIENT
  Sex: Female
  Weight: 54.43 kg

DRUGS (9)
  1. DURAGESIC-100 [Suspect]
     Indication: DRUG USE FOR UNKNOWN INDICATION
     Route: 062
  2. FENTANYL-100 [Suspect]
     Indication: DRUG USE FOR UNKNOWN INDICATION
     Route: 062
  3. FENTANYL-100 [Suspect]
     Indication: POST POLIO SYNDROME
     Route: 062
  4. FENTANYL-100 [Suspect]
     Route: 062
  5. DURAGESIC-100 [Suspect]
     Indication: POST POLIO SYNDROME
     Route: 062
  6. TAGAMET [Concomitant]
     Indication: ANTACID THERAPY
     Dosage: 1 IN AM AND 1 IN PM
     Route: 048
  7. CARAFATE [Concomitant]
     Indication: ULCER
     Dosage: ALONG WITH TEGAMENT
     Route: 048
  8. XANAX [Concomitant]
     Indication: ANXIETY
     Route: 048
  9. ESTRATEST [Concomitant]
     Indication: HORMONE REPLACEMENT THERAPY
     Route: 048

REACTIONS (7)
  - APPLICATION SITE ERYTHEMA [None]
  - ARTHRALGIA [None]
  - DRUG EFFECT DECREASED [None]
  - HYPOTHYROIDISM [None]
  - PRODUCT ADHESION ISSUE [None]
  - PRODUCT QUALITY ISSUE [None]
  - STRESS URINARY INCONTINENCE [None]
